FAERS Safety Report 10481123 (Version 1)
Quarter: 2014Q3

REPORT INFORMATION
  Report Type: Spontaneous
  Country: JP (occurrence: None)
  Receive Date: 20140925
  Receipt Date: 20140925
  Transmission Date: 20150326
  Serious: Yes (Hospitalization, Other)
  Sender: FDA-Public Use
  Company Number: AXC-2014-000564

PATIENT
  Sex: Male

DRUGS (1)
  1. URSODEOXYCHOLIC ACID [Suspect]
     Active Substance: URSODIOL
     Indication: CHOLESTASIS
     Route: 048

REACTIONS (7)
  - Postoperative adhesion [None]
  - Pneumonia [None]
  - Abdominal adhesions [None]
  - Small intestinal obstruction [None]
  - Ileus [None]
  - Faecalith [None]
  - Influenza like illness [None]
